FAERS Safety Report 20504496 (Version 1)
Quarter: 2022Q1

REPORT INFORMATION
  Report Type: Report from Study
  Country: CA (occurrence: CA)
  Receive Date: 20220223
  Receipt Date: 20220223
  Transmission Date: 20220423
  Serious: Yes (Other)
  Sender: FDA-Public Use
  Company Number: CA-ABBVIE-21K-028-4217433-00

PATIENT
  Age: 43 Year
  Sex: Female

DRUGS (1)
  1. RINVOQ [Suspect]
     Active Substance: UPADACITINIB
     Indication: Psoriatic arthropathy
     Route: 048
     Dates: start: 20211127

REACTIONS (32)
  - Deafness [Unknown]
  - Malaise [Unknown]
  - Hot flush [Not Recovered/Not Resolved]
  - Migraine [Unknown]
  - Vomiting [Unknown]
  - Diarrhoea [Unknown]
  - Nausea [Not Recovered/Not Resolved]
  - Erythema [Unknown]
  - Dry skin [Unknown]
  - Skin exfoliation [Unknown]
  - Sensory disturbance [Unknown]
  - Throat irritation [Unknown]
  - Oral discomfort [Unknown]
  - Irritable bowel syndrome [Not Recovered/Not Resolved]
  - Toothache [Unknown]
  - Tooth fracture [Unknown]
  - Loose tooth [Unknown]
  - Weight decreased [Unknown]
  - Limb injury [Unknown]
  - Joint injury [Unknown]
  - Head injury [Unknown]
  - SARS-CoV-2 test positive [Recovered/Resolved]
  - Musculoskeletal stiffness [Unknown]
  - Visual impairment [Unknown]
  - Memory impairment [Unknown]
  - Insomnia [Unknown]
  - Abdominal pain upper [Unknown]
  - Urine odour abnormal [Unknown]
  - Purpura [Unknown]
  - Onychomadesis [Unknown]
  - Fall [Not Recovered/Not Resolved]
  - Unevaluable event [Unknown]

NARRATIVE: CASE EVENT DATE: 20211201
